FAERS Safety Report 7937102-9 (Version None)
Quarter: 2011Q4

REPORT INFORMATION
  Report Type: 
  Country: None (occurrence: None)
  Receive Date: 20111123
  Receipt Date: 20111116
  Transmission Date: 20120403
  Serious: Yes (Hospitalization)
  Sender: FDA-Public Use
  Company Number: US-JNJFOC-20111107038

PATIENT
  Sex: Female
  Weight: 56.7 kg

DRUGS (5)
  1. REMICADE [Suspect]
     Indication: COLITIS ULCERATIVE
     Route: 042
     Dates: start: 20110901
  2. CITALOPRAM HYDROBROMIDE [Concomitant]
     Indication: MENOPAUSE
     Route: 048
     Dates: start: 20100101
  3. PRAVACHOL [Concomitant]
     Indication: BLOOD CHOLESTEROL
     Route: 048
  4. BLACK COHOSH [Concomitant]
     Indication: MENOPAUSE
     Dates: start: 20100101
  5. OMEGA 3-6-9 [Concomitant]
     Indication: CARDIAC DISORDER
     Dates: start: 20100101

REACTIONS (5)
  - INTERVERTEBRAL DISC DISORDER [None]
  - OEDEMA PERIPHERAL [None]
  - POOR VENOUS ACCESS [None]
  - POST PROCEDURAL COMPLICATION [None]
  - INFUSION SITE INFECTION [None]
